FAERS Safety Report 9079862 (Version 15)
Quarter: 2013Q4

REPORT INFORMATION
  Report Type: Spontaneous
  Country: DE (occurrence: DE)
  Receive Date: 20130215
  Receipt Date: 20131217
  Transmission Date: 20140711
  Serious: Yes (Hospitalization)
  Sender: FDA-Public Use
  Company Number: DE-GLAXOSMITHKLINE-D0078702A

PATIENT
  Age: 52 Year
  Sex: Female

DRUGS (4)
  1. REQUIP-MODUTAB [Suspect]
     Indication: PARKINSON^S DISEASE
     Dosage: 8MG IN THE MORNING
     Route: 048
     Dates: start: 201011
  2. LEVOPAR [Suspect]
     Indication: PARKINSON^S DISEASE
     Dosage: 125MG THREE TIMES PER DAY
     Route: 048
  3. ANTIHYPERTENSIVES [Concomitant]
     Route: 065
  4. MOTILIUM [Concomitant]
     Indication: PROPHYLAXIS OF NAUSEA AND VOMITING
     Route: 048

REACTIONS (31)
  - Tachycardia [Unknown]
  - Dizziness [Not Recovered/Not Resolved]
  - Gait disturbance [Recovering/Resolving]
  - Muscular weakness [Recovering/Resolving]
  - Muscle spasms [Recovering/Resolving]
  - Muscle spasms [Recovering/Resolving]
  - Gait disturbance [Recovering/Resolving]
  - Walking disability [Recovering/Resolving]
  - Muscle spasms [Recovering/Resolving]
  - Oedema peripheral [Unknown]
  - Drug ineffective [Recovered/Resolved]
  - Dystonia [Recovered/Resolved]
  - Mobility decreased [Recovering/Resolving]
  - Tremor [Unknown]
  - Tremor [Unknown]
  - Muscle spasms [Recovering/Resolving]
  - Dyskinesia [Recovering/Resolving]
  - Muscle twitching [Recovering/Resolving]
  - Gait disturbance [Recovering/Resolving]
  - Musculoskeletal stiffness [Recovering/Resolving]
  - Dyskinesia [Recovering/Resolving]
  - Asthenia [Recovering/Resolving]
  - Fatigue [Recovering/Resolving]
  - Nausea [Recovering/Resolving]
  - Muscle spasms [Unknown]
  - Pain [Unknown]
  - Hypoaesthesia [Unknown]
  - Weight decreased [Unknown]
  - Nausea [Not Recovered/Not Resolved]
  - Decreased appetite [Not Recovered/Not Resolved]
  - Hyperkinesia [Unknown]
